FAERS Safety Report 21136470 (Version 1)
Quarter: 2022Q3

REPORT INFORMATION
  Report Type: Spontaneous
  Country: JP (occurrence: JP)
  Receive Date: 20220727
  Receipt Date: 20220727
  Transmission Date: 20221026
  Serious: Yes (Hospitalization)
  Sender: FDA-Public Use
  Company Number: JP-ELI_LILLY_AND_COMPANY-JP202207008109

PATIENT
  Age: 65 Year

DRUGS (3)
  1. OLUMIANT [Suspect]
     Active Substance: BARICITINIB
     Indication: Rheumatoid arthritis
     Dosage: 2 MG, DAILY
     Route: 048
     Dates: start: 202203, end: 202204
  2. OLUMIANT [Suspect]
     Active Substance: BARICITINIB
     Dosage: 4 UNK
     Route: 048
     Dates: start: 202204
  3. TRAMCET [Concomitant]
     Active Substance: ACETAMINOPHEN\TRAMADOL
     Indication: Fibromyalgia

REACTIONS (6)
  - Blood pressure increased [Unknown]
  - Heart rate increased [Unknown]
  - Insomnia [Unknown]
  - Drug ineffective [Unknown]
  - Liver function test increased [Unknown]
  - Headache [Unknown]

NARRATIVE: CASE EVENT DATE: 20220101
